FAERS Safety Report 4313966-5 (Version None)
Quarter: 2004Q1

REPORT INFORMATION
  Report Type: 
  Country: None (occurrence: None)
  Receive Date: 20040305
  Receipt Date: 20040225
  Transmission Date: 20041129
  Serious: Yes (Hospitalization, Other)
  Sender: FDA-Public Use
  Company Number: FRWYE601625FEB04

PATIENT
  Age: 24 Year
  Sex: Female

DRUGS (1)
  1. LEVONORGESTREL AND ETHINYL ESTRADIOL [Suspect]
     Dosage: ORAL
     Route: 048
     Dates: start: 19950630, end: 19960630

REACTIONS (3)
  - ACUTE ABDOMEN [None]
  - APPENDICECTOMY [None]
  - OVARIAN CYST [None]
